FAERS Safety Report 20923284 (Version 1)
Quarter: 2022Q2

REPORT INFORMATION
  Report Type: Spontaneous
  Country: US (occurrence: US)
  Receive Date: 20220607
  Receipt Date: 20220607
  Transmission Date: 20220721
  Serious: Yes (Other)
  Sender: FDA-Public Use
  Company Number: US-MYLANLABS-2022M1042828

PATIENT
  Age: 64 Year
  Sex: Female

DRUGS (8)
  1. ETOPOSIDE [Suspect]
     Active Substance: ETOPOSIDE
     Indication: Plasmablastic lymphoma
     Dosage: PART OF D-ICE REGIMEN STANDARD DOSING AT 3 WEEK INTERVALS , CYCLE
  2. ETOPOSIDE [Suspect]
     Active Substance: ETOPOSIDE
     Dosage: DOSE REDUCED
  3. CARBOPLATIN [Suspect]
     Active Substance: CARBOPLATIN
     Indication: Plasmablastic lymphoma
     Dosage: UNK, CYCLE,PART OF D-ICE REGIMEN STANDARD DOSING AT 3 WEEK INTERVALS
  4. IFOSFAMIDE [Suspect]
     Active Substance: IFOSFAMIDE
     Indication: Plasmablastic lymphoma
     Dosage: PART OF D-ICE REGIMEN STANDARD DOSING AT 3 WEEK INTERVALS, QW
  5. GEMCITABINE [Suspect]
     Active Substance: GEMCITABINE
     Indication: Plasmablastic lymphoma
     Dosage: UNK, CYCLE
  6. OXALIPLATIN [Suspect]
     Active Substance: OXALIPLATIN
     Indication: Plasmablastic lymphoma
     Dosage: UNK, CYCLE
  7. DARATUMUMAB [Suspect]
     Active Substance: DARATUMUMAB
     Indication: Plasmablastic lymphoma
     Dosage: PART OF D-ICE REGIMEN; WEEKLY, CYCLE
  8. IXAZOMIB [Suspect]
     Active Substance: IXAZOMIB
     Indication: Plasmablastic lymphoma
     Dosage: UNK

REACTIONS (2)
  - Myelosuppression [Unknown]
  - Drug ineffective [Unknown]
